FAERS Safety Report 5169139-X (Version None)
Quarter: 2006Q4

REPORT INFORMATION
  Report Type: 
  Country: None (occurrence: None)
  Receive Date: 20061211
  Receipt Date: 20061204
  Transmission Date: 20070319
  Serious: Yes (Death)
  Sender: FDA-Public Use
  Company Number: BE-MERCK-0612BEL00004

PATIENT
  Age: 78 Year
  Sex: Female

DRUGS (5)
  1. SINGULAIR [Suspect]
     Indication: ASTHMA
     Route: 048
     Dates: start: 20060816
  2. SINGULAIR [Suspect]
     Indication: RHINITIS ALLERGIC
     Route: 048
     Dates: start: 20060816
  3. BUDESONIDE [Concomitant]
     Indication: ASTHMA
  4. [THERAPY UNSPECIFIED] [Concomitant]
     Indication: ASTHMA
  5. INHALED CORTICOSTEROID (UNSPECIFIED) [Concomitant]
     Indication: RHINITIS ALLERGIC

REACTIONS (1)
  - NEOPLASM [None]
